FAERS Safety Report 12846837 (Version 5)
Quarter: 2017Q1

REPORT INFORMATION
  Report Type: Spontaneous
  Country: CA (occurrence: CA)
  Receive Date: 20161014
  Receipt Date: 20170126
  Transmission Date: 20170428
  Serious: Yes (Other)
  Sender: FDA-Public Use
  Company Number: CA-ORION CORPORATION ORION PHARMA-TREX2016-1950

PATIENT
  Age: 68 Year
  Sex: Female

DRUGS (3)
  1. TRAZODONE [Concomitant]
     Active Substance: TRAZODONE HYDROCHLORIDE
     Route: 065
  2. NOVO-GESIC [Concomitant]
     Route: 065
  3. METHOTREXATE (TRADE NAME UNKNOWN) [Suspect]
     Active Substance: METHOTREXATE
     Indication: RHEUMATOID ARTHRITIS
     Route: 065
     Dates: start: 20160630, end: 20160915

REACTIONS (5)
  - Drug intolerance [Unknown]
  - Monocytosis [Unknown]
  - Nausea [Unknown]
  - Neutropenia [Unknown]
  - Nail infection [Unknown]

NARRATIVE: CASE EVENT DATE: 2016
